FAERS Safety Report 15562383 (Version 2)
Quarter: 2018Q4

REPORT INFORMATION
  Report Type: Report from Study
  Country: US (occurrence: US)
  Receive Date: 20181029
  Receipt Date: 20181109
  Transmission Date: 20190205
  Serious: Yes (Hospitalization)
  Sender: FDA-Public Use
  Company Number: US-TESAROUBC-US-2018TSO03723

PATIENT
  Age: 79 Year
  Sex: Female

DRUGS (4)
  1. ZEJULA [Suspect]
     Active Substance: NIRAPARIB
     Dosage: 200 MG, UNK
     Dates: start: 20180303, end: 2018
  2. ZEJULA [Suspect]
     Active Substance: NIRAPARIB
     Dosage: 100 MG, HS WITH AND WITHOUT FOOD
     Route: 048
     Dates: start: 201805
  3. ZEJULA [Suspect]
     Active Substance: NIRAPARIB
     Indication: OVARIAN CANCER
     Dosage: 300 MG, UNK
     Dates: start: 20180217
  4. ZEJULA [Suspect]
     Active Substance: NIRAPARIB
     Dosage: 100 MG, QD
     Route: 048
     Dates: start: 20180221

REACTIONS (6)
  - Nausea [Recovered/Resolved]
  - Sensitivity of teeth [Not Recovered/Not Resolved]
  - Intentional underdose [Unknown]
  - Gastrointestinal haemorrhage [Not Recovered/Not Resolved]
  - Feeling abnormal [Not Recovered/Not Resolved]
  - Cystitis [Unknown]

NARRATIVE: CASE EVENT DATE: 201805
